FAERS Safety Report 13676295 (Version 2)
Quarter: 2017Q4

REPORT INFORMATION
  Report Type: Report from Study
  Country: US (occurrence: US)
  Receive Date: 20170622
  Receipt Date: 20171031
  Transmission Date: 20180320
  Serious: No
  Sender: FDA-Public Use
  Company Number: PHHY2017US088695

PATIENT
  Age: 44 Year
  Sex: Female

DRUGS (4)
  1. GILENYA [Suspect]
     Active Substance: FINGOLIMOD HYDROCHLORIDE
     Indication: MULTIPLE SCLEROSIS
     Dosage: QD
     Route: 048
  2. GILENYA [Suspect]
     Active Substance: FINGOLIMOD HYDROCHLORIDE
     Dosage: UNK, QD
     Route: 048
  3. SOLU-MEDROL [Concomitant]
     Active Substance: METHYLPREDNISOLONE SODIUM SUCCINATE
     Indication: MULTIPLE SCLEROSIS RELAPSE
     Dosage: UNK
     Route: 065
     Dates: start: 20170328, end: 20170401
  4. H.P. ACTHAR [Concomitant]
     Active Substance: CORTICOTROPIN
     Indication: MULTIPLE SCLEROSIS RELAPSE
     Dosage: UNK
     Route: 065
     Dates: start: 20170404, end: 20170409

REACTIONS (9)
  - Burning sensation [Unknown]
  - Vibratory sense increased [Unknown]
  - Asthenia [Unknown]
  - White blood cell count decreased [Unknown]
  - Feeling abnormal [Recovered/Resolved]
  - Gait disturbance [Unknown]
  - Hypoaesthesia [Unknown]
  - Balance disorder [Unknown]
  - Paraesthesia [Unknown]

NARRATIVE: CASE EVENT DATE: 20170306
